FAERS Safety Report 6805784-0 (Version None)
Quarter: 2010Q2

REPORT INFORMATION
  Report Type: 
  Country: None (occurrence: None)
  Receive Date: 20100628
  Receipt Date: 20100614
  Transmission Date: 20101027
  Serious: Yes (Death, Disabling)
  Sender: FDA-Public Use
  Company Number: GB-MYLANLABS-2010S1010666

PATIENT
  Age: 77 Year
  Sex: Female

DRUGS (14)
  1. TRAZODONE HYDROCHLORIDE [Suspect]
     Indication: DRUG USE FOR UNKNOWN INDICATION
  2. HALOPERIDOL [Suspect]
     Indication: AGITATION
     Route: 048
     Dates: start: 20090414, end: 20100430
  3. ASPIRIN [Concomitant]
     Indication: DRUG USE FOR UNKNOWN INDICATION
  4. AMPICILLIN SODIUM/SULBACTAM SODIUM [Concomitant]
     Indication: DRUG USE FOR UNKNOWN INDICATION
  5. DIAZEPAM [Concomitant]
     Indication: DRUG USE FOR UNKNOWN INDICATION
  6. DONEPEZIL HCL [Concomitant]
     Indication: DRUG USE FOR UNKNOWN INDICATION
  7. DOXAZOSIN MESYLATE [Concomitant]
     Indication: DRUG USE FOR UNKNOWN INDICATION
  8. FELODIPINE [Concomitant]
     Indication: DRUG USE FOR UNKNOWN INDICATION
  9. FLUCLOXACILLIN [Concomitant]
     Indication: DRUG USE FOR UNKNOWN INDICATION
  10. IRBESARTAN [Concomitant]
     Indication: DRUG USE FOR UNKNOWN INDICATION
  11. LORAZEPAM [Concomitant]
     Indication: DRUG USE FOR UNKNOWN INDICATION
  12. METRONIDAZOLE [Concomitant]
     Indication: DRUG USE FOR UNKNOWN INDICATION
  13. QUETIAPINE [Concomitant]
     Indication: DRUG USE FOR UNKNOWN INDICATION
  14. VANCOMYCIN [Concomitant]
     Indication: DRUG USE FOR UNKNOWN INDICATION

REACTIONS (1)
  - TARDIVE DYSKINESIA [None]
